FAERS Safety Report 8074386-3 (Version None)
Quarter: 2012Q1

REPORT INFORMATION
  Report Type: 
  Country: None (occurrence: None)
  Receive Date: 20120126
  Receipt Date: 20120120
  Transmission Date: 20120608
  Serious: Yes (Death)
  Sender: FDA-Public Use
  Company Number: US-GLAXOSMITHKLINE-A0962796A

PATIENT
  Age: 52 Year
  Sex: Male
  Weight: 70.5 kg

DRUGS (8)
  1. DIURETICS [Concomitant]
  2. REVATIO [Concomitant]
  3. TRACLEER [Concomitant]
  4. OXYGEN [Concomitant]
  5. FLOLAN [Suspect]
     Indication: PRODUCT USED FOR UNKNOWN INDICATION
  6. REMODULIN [Suspect]
     Indication: PULMONARY ARTERIAL HYPERTENSION
     Route: 042
     Dates: start: 20111118, end: 20111229
  7. DIGOXIN [Concomitant]
  8. CITALOPRAM HYDROBROMIDE [Suspect]
     Indication: PRODUCT USED FOR UNKNOWN INDICATION

REACTIONS (2)
  - HAEMORRHAGE [None]
  - RENAL FAILURE [None]
